FAERS Safety Report 6589910-7 (Version None)
Quarter: 2010Q1

REPORT INFORMATION
  Report Type: 
  Country: None (occurrence: None)
  Receive Date: 20100219
  Receipt Date: 20090421
  Transmission Date: 20100710
  Serious: Yes (Other)
  Sender: FDA-Public Use
  Company Number: CA-BAXTER-2009BH006609

PATIENT
  Age: 67 Year
  Sex: Male

DRUGS (2)
  1. GAMMAGARD LIQUID [Suspect]
     Indication: IDIOPATHIC THROMBOCYTOPENIC PURPURA
     Route: 042
     Dates: start: 20090213, end: 20090213
  2. GAMMAGARD LIQUID [Suspect]
     Route: 042
     Dates: start: 20090214, end: 20090214

REACTIONS (2)
  - ANTI-ERYTHROCYTE ANTIBODY POSITIVE [None]
  - HAEMOLYSIS [None]
